FAERS Safety Report 15164230 (Version 1)
Quarter: 2018Q3

REPORT INFORMATION
  Report Type: Spontaneous
  Country: US (occurrence: US)
  Receive Date: 20180719
  Receipt Date: 20180719
  Transmission Date: 20181010
  Serious: No
  Sender: FDA-Public Use
  Company Number: US-PFIZER INC-2018285774

PATIENT
  Age: 59 Year
  Sex: Female
  Weight: 82.54 kg

DRUGS (1)
  1. XELJANZ XR [Suspect]
     Active Substance: TOFACITINIB CITRATE
     Indication: RHEUMATOID ARTHRITIS
     Dosage: 11 MG, DAILY(TAKE 1 TABLET BY MOUTH)
     Route: 048
     Dates: start: 201712

REACTIONS (1)
  - Meniscus injury [Unknown]
